FAERS Safety Report 4530754-5 (Version None)
Quarter: 2004Q4

REPORT INFORMATION
  Report Type: 
  Country: None (occurrence: None)
  Receive Date: 20041216
  Receipt Date: 20041122
  Transmission Date: 20050328
  Serious: Yes (Death)
  Sender: FDA-Public Use
  Company Number: 209172

PATIENT
  Age: 77 Year
  Sex: 0

DRUGS (8)
  1. MABTHERA(RITUXIMAB) CONC FOR SOLUTION FOR INFUSION [Suspect]
     Indication: NON-HODGKIN'S LYMPHOMA
     Dosage: 580 MG, Q3W, INTRAVENOUS
     Route: 042
     Dates: start: 20040519, end: 20040722
  2. ALLOPURINOL [Concomitant]
  3. FLUCONAZOLE [Concomitant]
  4. CYCLOPHOSPHAMIDE [Concomitant]
  5. DOXORUBICIN (DOXORUBICIN, DOXORUBICIN HYDROCHLORIDE) [Concomitant]
  6. VINCRISTINE [Concomitant]
  7. PREDNISOLONE [Concomitant]
  8. ANTICOAGULANTS (ANTICOAGULANTS) [Concomitant]

REACTIONS (1)
  - STEVENS-JOHNSON SYNDROME [None]
